FAERS Safety Report 17638763 (Version 1)
Quarter: 2020Q2

REPORT INFORMATION
  Report Type: Spontaneous
  Country: US (occurrence: US)
  Receive Date: 20200407
  Receipt Date: 20200407
  Transmission Date: 20200713
  Serious: No
  Sender: FDA-Public Use
  Company Number: US-SA-2020SA087031

PATIENT
  Sex: Female

DRUGS (25)
  1. CELEBREX [Concomitant]
     Active Substance: CELECOXIB
  2. BOTOX [Concomitant]
     Active Substance: ONABOTULINUMTOXINA
  3. ALBUTEROL SULFATE. [Concomitant]
     Active Substance: ALBUTEROL SULFATE
  4. DOXEPIN HCL [Concomitant]
     Active Substance: DOXEPIN HYDROCHLORIDE
  5. GABAPENTIN. [Concomitant]
     Active Substance: GABAPENTIN
  6. MIRTAZAPINE. [Concomitant]
     Active Substance: MIRTAZAPINE
  7. SINGULAIR [Concomitant]
     Active Substance: MONTELUKAST SODIUM
  8. SYMBICORT [Concomitant]
     Active Substance: BUDESONIDE\FORMOTEROL FUMARATE DIHYDRATE
  9. TOPIRAMATE. [Concomitant]
     Active Substance: TOPIRAMATE
  10. VERAPAMIL HCL [Concomitant]
     Active Substance: VERAPAMIL HYDROCHLORIDE
  11. CYMBALTA [Concomitant]
     Active Substance: DULOXETINE HYDROCHLORIDE
  12. TIZANIDINE. [Concomitant]
     Active Substance: TIZANIDINE
  13. CLARITINE [Concomitant]
     Active Substance: LORATADINE
  14. MIRAPEX [Concomitant]
     Active Substance: PRAMIPEXOLE DIHYDROCHLORIDE
  15. DUOVISC [Concomitant]
     Active Substance: CHONDROITIN SULFATE A\HYALURONATE SODIUM
  16. IPRATROPIUM/ALBUTEROL [Concomitant]
     Active Substance: ALBUTEROL\IPRATROPIUM
  17. MEDROL [METHYLPREDNISOLONE ACETATE] [Concomitant]
     Active Substance: METHYLPREDNISOLONE ACETATE
  18. SPIRIVA [Concomitant]
     Active Substance: TIOTROPIUM BROMIDE MONOHYDRATE
  19. VENLAFAXINE [Concomitant]
     Active Substance: VENLAFAXINE HYDROCHLORIDE
  20. PREDNISONE. [Concomitant]
     Active Substance: PREDNISONE
  21. RANITIDINE HCL [Concomitant]
     Active Substance: RANITIDINE HYDROCHLORIDE
  22. DUPIXENT [Suspect]
     Active Substance: DUPILUMAB
     Indication: PRODUCT USED FOR UNKNOWN INDICATION
     Dosage: 300 MG, QOW
     Route: 058
     Dates: start: 20190730
  23. DULERA [Concomitant]
     Active Substance: FORMOTEROL FUMARATE DIHYDRATE\MOMETASONE FUROATE
  24. FLONASE ALLERGY RELIEF [Concomitant]
     Active Substance: FLUTICASONE PROPIONATE
  25. OLANZAPINE. [Concomitant]
     Active Substance: OLANZAPINE

REACTIONS (2)
  - Injection site rash [Recovered/Resolved]
  - Injection site bruising [Recovered/Resolved]
